FAERS Safety Report 13729329 (Version 2)
Quarter: 2017Q3

REPORT INFORMATION
  Report Type: Spontaneous
  Country: MX (occurrence: MX)
  Receive Date: 20170707
  Receipt Date: 20170817
  Transmission Date: 20171127
  Serious: No
  Sender: FDA-Public Use
  Company Number: MX-ROCHE-1959359

PATIENT
  Sex: Male

DRUGS (5)
  1. VENETOCLAX. [Suspect]
     Active Substance: VENETOCLAX
     Dosage: CURRENTLY ONGOING
     Route: 065
     Dates: start: 201707
  2. GAZYVA [Suspect]
     Active Substance: OBINUTUZUMAB
     Dosage: CURRENTLY ONGOING
     Route: 065
     Dates: start: 201707
  3. RITUXIMAB. [Suspect]
     Active Substance: RITUXIMAB
     Indication: LYMPHOMA
     Route: 065
  4. VENETOCLAX. [Suspect]
     Active Substance: VENETOCLAX
     Indication: LYMPHOMA
     Dosage: CURRENTLY ONGOING
     Route: 065
     Dates: start: 201706
  5. GAZYVA [Suspect]
     Active Substance: OBINUTUZUMAB
     Indication: LYMPHOMA
     Dosage: CURRENTLY ONGOING
     Route: 065
     Dates: start: 201706

REACTIONS (3)
  - Lymphoma [Unknown]
  - Off label use [Unknown]
  - Intentional product use issue [Unknown]

NARRATIVE: CASE EVENT DATE: 201706
